FAERS Safety Report 26069487 (Version 1)
Quarter: 2025Q4

REPORT INFORMATION
  Report Type: Spontaneous
  Country: AU (occurrence: AU)
  Receive Date: 20251120
  Receipt Date: 20251120
  Transmission Date: 20260117
  Serious: Yes (Other)
  Sender: RANBAXY
  Company Number: AU-SUN PHARMACEUTICAL INDUSTRIES LTD-2025R1-529415

PATIENT
  Age: 52 Year
  Sex: Female

DRUGS (1)
  1. OLANZAPINE [Suspect]
     Active Substance: OLANZAPINE
     Indication: Product used for unknown indication
     Dosage: 300 MILLIGRAM
     Route: 030

REACTIONS (4)
  - Post-injection delirium sedation syndrome [Recovered/Resolved]
  - Ataxia [Unknown]
  - Tachycardia [Recovered/Resolved]
  - Toxicity to various agents [Unknown]
